FAERS Safety Report 10006993 (Version 2)
Quarter: 2014Q2

REPORT INFORMATION
  Report Type: Spontaneous
  Country: US (occurrence: None)
  Receive Date: 20140311
  Receipt Date: 20140402
  Transmission Date: 20141212
  Serious: Yes (Hospitalization)
  Sender: FDA-Public Use
  Company Number: NSR_01524_2014

PATIENT
  Age: 76 Year
  Sex: Female
  Weight: 82.1 kg

DRUGS (15)
  1. BACLOFEN [Suspect]
     Indication: MUSCLE SPASMS
     Route: 048
     Dates: start: 20140219, end: 20140220
  2. LOVASTATIN [Concomitant]
  3. METFORMIN [Concomitant]
  4. CLOPIDOGREL [Concomitant]
  5. ATENOLOL [Concomitant]
  6. GLIPIZIDE [Concomitant]
  7. LISINOPRIL [Concomitant]
  8. HYDROXYUREA [Concomitant]
  9. PLAVIX [Concomitant]
  10. FLEXERIL/00428402 [Concomitant]
  11. RANITIDINE [Concomitant]
  12. INDOMETHAXIN/00003801 [Concomitant]
  13. LORATIDINE [Concomitant]
  14. PHENERGAN/00033001 [Concomitant]
  15. TYLENOL/00020001 [Concomitant]

REACTIONS (7)
  - Vomiting [None]
  - Loss of consciousness [None]
  - Dizziness [None]
  - Hyperhidrosis [None]
  - Asthenia [None]
  - Nausea [None]
  - Headache [None]
